FAERS Safety Report 12185838 (Version 2)
Quarter: 2016Q2

REPORT INFORMATION
  Report Type: Report from Study
  Country: BR (occurrence: BR)
  Receive Date: 20160317
  Receipt Date: 20160418
  Transmission Date: 20160815
  Serious: Yes (Other)
  Sender: FDA-Public Use
  Company Number: BR-BIOGEN-2016BI00204318

PATIENT
  Age: 53 Year
  Sex: Female

DRUGS (3)
  1. PAROXETINE. [Concomitant]
     Active Substance: PAROXETINE
     Indication: STRESS
     Route: 065
  2. TYSABRI [Suspect]
     Active Substance: NATALIZUMAB
     Indication: MULTIPLE SCLEROSIS
     Route: 042
     Dates: start: 20160114
  3. CLONAZEPAN [Concomitant]
     Active Substance: CLONAZEPAM
     Indication: STRESS
     Route: 065

REACTIONS (4)
  - Central nervous system infection [Unknown]
  - Confusional state [Unknown]
  - Multiple sclerosis relapse [Unknown]
  - Urinary tract infection [Unknown]

NARRATIVE: CASE EVENT DATE: 201602
